FAERS Safety Report 8621270-X (Version None)
Quarter: 2012Q3

REPORT INFORMATION
  Report Type: 
  Country: None (occurrence: None)
  Receive Date: 20120824
  Receipt Date: 20120822
  Transmission Date: 20120928
  Serious: Yes (Life-Threatening, Other)
  Sender: FDA-Public Use
  Company Number: DE-B.I. PHARMACEUTICALS,INC./RIDGEFIELD-2012-DE-01812DE

PATIENT
  Sex: Male
  Weight: 73 kg

DRUGS (13)
  1. PRADAXA [Suspect]
     Indication: ATRIAL FIBRILLATION
     Dosage: 150 MG
     Route: 048
     Dates: start: 20111001, end: 20120616
  2. FUROSEMIDE [Concomitant]
     Dosage: 160 NR
  3. ACTRAPHANE 30 [Concomitant]
     Dosage: 28 U
  4. RAMIPRIL [Concomitant]
     Dosage: 2.5 MG
  5. FERROUS SULFATE TAB [Concomitant]
     Dosage: 1 ANZ
  6. SIMVA [Concomitant]
     Dosage: 20 MG
  7. METOPROLOL TARTRATE [Concomitant]
     Dosage: 95 MG
  8. ASPIRIN [Concomitant]
     Dosage: 100 MG
  9. SITAGLIPTIN PHOSPHATE [Concomitant]
     Dosage: 100 MG
  10. ACTRAPHANE 30 [Concomitant]
     Dosage: 34 U
  11. SPIRONOLACTONE [Concomitant]
     Dosage: 50 NR
  12. ALLOPURINOL [Concomitant]
     Dosage: 150 NR
  13. TRAMADOL HCL [Concomitant]
     Dosage: 100 NR

REACTIONS (10)
  - SHOCK HAEMORRHAGIC [None]
  - HYPOXIC-ISCHAEMIC ENCEPHALOPATHY [None]
  - DISTURBANCE IN ATTENTION [None]
  - TOXICITY TO VARIOUS AGENTS [None]
  - PNEUMONIA [None]
  - RENAL FAILURE ACUTE [None]
  - BLOOD PRESSURE DECREASED [None]
  - EPISTAXIS [None]
  - MELAENA [None]
  - HAEMATEMESIS [None]
